FAERS Safety Report 10136481 (Version 1)
Quarter: 2014Q2

REPORT INFORMATION
  Report Type: Spontaneous
  Country: US (occurrence: None)
  Receive Date: 20140425
  Receipt Date: 20140425
  Transmission Date: 20141212
  Serious: Yes (Other)
  Sender: FDA-Public Use
  Company Number: IPC201404-000179

PATIENT
  Age: 32 Year
  Sex: Male

DRUGS (1)
  1. HYDROCHLOROTHIAZIDE\LOSARTAN POTASSIUM [Suspect]
     Indication: HYPERTENSION

REACTIONS (8)
  - Pemphigoid [None]
  - Influenza like illness [None]
  - Rhinorrhoea [None]
  - Cough [None]
  - Malaise [None]
  - Nausea [None]
  - Pyrexia [None]
  - Eczema [None]
